FAERS Safety Report 9856438 (Version 1)
Quarter: 2014Q1

REPORT INFORMATION
  Report Type: Spontaneous
  Country: US (occurrence: US)
  Receive Date: 20140130
  Receipt Date: 20140130
  Transmission Date: 20141002
  Serious: Yes (Hospitalization, Other)
  Sender: FDA-Public Use
  Company Number: US-PFIZER INC-2014026152

PATIENT
  Age: 66 Year
  Sex: Male

DRUGS (6)
  1. LYRICA [Suspect]
     Dosage: 25 MG, 1X/DAY
     Route: 048
  2. ALLOPURINOL [Concomitant]
     Dosage: 100 MG, 2X/DAY
     Route: 048
  3. MIDODRINE [Concomitant]
     Dosage: 5 MG, 3X/DAY
     Route: 048
  4. PRESERVISION AREDS [Concomitant]
     Dosage: 14, 320-226-200, 1X/DAY (1 CAPSULE ONCE A DAY)
     Route: 048
  5. RENVELA [Concomitant]
     Dosage: 800 MG, 3X/DAY
     Route: 048
  6. TYLENOL PM, EXTRA STRENGTH [Concomitant]
     Dosage: 25-500 MG, 3X/DAY
     Route: 048

REACTIONS (3)
  - Renal failure [Unknown]
  - Renal failure chronic [Unknown]
  - Focal segmental glomerulosclerosis [Unknown]
